FAERS Safety Report 12565603 (Version 3)
Quarter: 2016Q3

REPORT INFORMATION
  Report Type: Report from Study
  Country: JP (occurrence: JP)
  Receive Date: 20160718
  Receipt Date: 20160909
  Transmission Date: 20161109
  Serious: Yes (Death, Life-Threatening)
  Sender: FDA-Public Use
  Company Number: JP-EISAI MEDICAL RESEARCH-EC-2016-018606

PATIENT
  Age: 66 Year
  Sex: Female
  Weight: 58 kg

DRUGS (20)
  1. PACLITAXEL. [Concomitant]
     Active Substance: PACLITAXEL
  2. AVASTIN [Concomitant]
     Active Substance: BEVACIZUMAB
  3. DENOTAS [Concomitant]
     Active Substance: CALCIUM CARBONATE\CHOLECALCIFEROL\MAGNESIUM CARBONATE
  4. HALAVEN [Suspect]
     Active Substance: ERIBULIN MESYLATE
     Indication: BREAST CANCER RECURRENT
     Route: 041
     Dates: start: 20151228, end: 20160104
  5. LANSOPRAZOLE. [Concomitant]
     Active Substance: LANSOPRAZOLE
  6. REBAMIPIDE [Concomitant]
     Active Substance: REBAMIPIDE
  7. ROPION [Concomitant]
     Active Substance: FLURBIPROFEN AXETIL
  8. HALAVEN [Suspect]
     Active Substance: ERIBULIN MESYLATE
     Route: 041
     Dates: start: 20160125, end: 20160201
  9. LOXOPROFEN [Concomitant]
     Active Substance: LOXOPROFEN
  10. FENTOS [Concomitant]
     Active Substance: FENTANYL
  11. JZOLOFT [Concomitant]
     Active Substance: SERTRALINE HYDROCHLORIDE
  12. DEXALTIN [Concomitant]
     Active Substance: DEXAMETHASONE
  13. GRAN [Concomitant]
     Active Substance: FILGRASTIM
  14. RIZE [Concomitant]
     Active Substance: CLOTIAZEPAM
  15. PROCHLORPERAZINE. [Concomitant]
     Active Substance: PROCHLORPERAZINE
  16. BFLUID [Concomitant]
     Active Substance: AMINO ACIDS\DEXTROSE\ELECTROLYTES NOS\VITAMINS
  17. PYDOXAL [Concomitant]
     Active Substance: PYRIDOXAL
  18. OXYCONTIN [Concomitant]
     Active Substance: OXYCODONE HYDROCHLORIDE
  19. MAGMITT [Concomitant]
     Active Substance: MAGNESIUM OXIDE
  20. MAXIPIME [Concomitant]
     Active Substance: CEFEPIME HYDROCHLORIDE

REACTIONS (2)
  - Malignant neoplasm progression [Fatal]
  - Febrile neutropenia [Recovered/Resolved]

NARRATIVE: CASE EVENT DATE: 20160104
